FAERS Safety Report 4457946-8 (Version None)
Quarter: 2004Q3

REPORT INFORMATION
  Report Type: 
  Country: None (occurrence: None)
  Receive Date: 20040924
  Receipt Date: 20040920
  Transmission Date: 20050211
  Serious: Yes (Life-Threatening, Other)
  Sender: FDA-Public Use
  Company Number: US-BRISTOL-MYERS SQUIBB COMPANY-12707402

PATIENT
  Age: 61 Year
  Sex: Male

DRUGS (4)
  1. VIDEX [Suspect]
     Route: 048
     Dates: start: 20010101
  2. MACROLIN [Suspect]
     Indication: HIV INFECTION
     Route: 058
     Dates: start: 20030715, end: 20030719
  3. VIRAMUNE [Suspect]
     Route: 048
     Dates: start: 20010101
  4. EPIVIR [Suspect]
     Route: 048
     Dates: start: 20010101

REACTIONS (2)
  - CHOLESTASIS [None]
  - MITOCHONDRIAL TOXICITY [None]
